FAERS Safety Report 5643611-8 (Version None)
Quarter: 2008Q1

REPORT INFORMATION
  Report Type: 
  Country: None (occurrence: None)
  Receive Date: 20080228
  Receipt Date: 20080225
  Transmission Date: 20080703
  Serious: Yes (Death)
  Sender: FDA-Public Use
  Company Number: US-GENENTECH-256668

PATIENT
  Age: 47 Year
  Sex: Male

DRUGS (1)
  1. ACTIVASE [Suspect]
     Indication: ISCHAEMIC STROKE

REACTIONS (2)
  - DEATH [None]
  - DRUG INEFFECTIVE [None]
